FAERS Safety Report 6549546-0 (Version None)
Quarter: 2010Q1

REPORT INFORMATION
  Report Type: 
  Country: None (occurrence: None)
  Receive Date: 20100125
  Receipt Date: 20100115
  Transmission Date: 20100710
  Serious: Yes (Hospitalization)
  Sender: FDA-Public Use
  Company Number: CA-ASTRAZENECA-2010SE02232

PATIENT
  Sex: Male

DRUGS (5)
  1. PULMICORT [Suspect]
     Indication: CHRONIC OBSTRUCTIVE PULMONARY DISEASE
     Route: 055
     Dates: start: 20070101
  2. ALBUTEROL [Concomitant]
  3. SPIRIVA [Concomitant]
  4. ADVAIR [Concomitant]
  5. BIAXIN [Concomitant]

REACTIONS (7)
  - CHEST DISCOMFORT [None]
  - DEPRESSED MOOD [None]
  - FRACTURE [None]
  - HALLUCINATION, AUDITORY [None]
  - HALLUCINATION, VISUAL [None]
  - NAUSEA [None]
  - PSYCHOTIC DISORDER [None]
